FAERS Safety Report 4674557-X (Version None)
Quarter: 2005Q2

REPORT INFORMATION
  Report Type: 
  Country: None (occurrence: None)
  Receive Date: 20050526
  Receipt Date: 20050520
  Transmission Date: 20051028
  Serious: Yes (Hospitalization)
  Sender: FDA-Public Use
  Company Number: US-MERCK-0505USA02485

PATIENT
  Age: 79 Year
  Sex: Female

DRUGS (13)
  1. VIOXX [Suspect]
     Indication: ARTHRITIS
     Route: 048
     Dates: start: 19990831, end: 20040930
  2. COUMADIN [Concomitant]
     Route: 065
  3. ATACAND HCT [Concomitant]
     Route: 065
  4. LASIX [Concomitant]
     Route: 065
  5. SINGULAIR [Concomitant]
     Route: 048
  6. MUCINEX [Concomitant]
     Route: 065
  7. FOSAMAX [Concomitant]
     Route: 048
  8. RESTORIL [Concomitant]
     Route: 065
  9. CITRACAL [Concomitant]
     Route: 065
  10. PROTONIX [Concomitant]
     Route: 065
  11. ADVAIR DISKUS 100/50 [Concomitant]
     Route: 065
  12. SOTALOL HYDROCHLORIDE [Concomitant]
     Route: 065
  13. VITAMINS (UNSPECIFIED) [Concomitant]
     Route: 065

REACTIONS (1)
  - ATRIAL FIBRILLATION [None]
